FAERS Safety Report 5026712-7 (Version None)
Quarter: 2006Q2

REPORT INFORMATION
  Report Type: 
  Country: None (occurrence: None)
  Receive Date: 20060615
  Receipt Date: 20060522
  Transmission Date: 20061013
  Serious: Yes (Hospitalization)
  Sender: FDA-Public Use
  Company Number: PHBS2006ES07630

PATIENT
  Age: 83 Year
  Sex: Male

DRUGS (6)
  1. VOLTAREN [Suspect]
     Dosage: 50 MG/DAY
     Route: 048
     Dates: end: 20060403
  2. AIRTAL [Suspect]
     Dosage: 100 MG/DAY
     Route: 048
     Dates: end: 20060403
  3. ACETYLSALICYLIC ACID SRT [Suspect]
     Dosage: UNK, UNK
     Route: 048
     Dates: end: 20060403
  4. KALPRESS PLUS [Suspect]
  5. TRANXILIUM [Concomitant]
     Indication: ANXIETY
     Dosage: 5 MG/DAY
     Dates: end: 20060403
  6. OMEPRAZOLE [Concomitant]
     Route: 048

REACTIONS (5)
  - BLOOD CREATININE INCREASED [None]
  - BLOOD POTASSIUM INCREASED [None]
  - BLOOD UREA INCREASED [None]
  - DRUG INTERACTION [None]
  - RENAL FAILURE ACUTE [None]
